FAERS Safety Report 10425586 (Version 1)
Quarter: 2014Q3

REPORT INFORMATION
  Report Type: Spontaneous
  Country: IN (occurrence: IN)
  Receive Date: 20140902
  Receipt Date: 20140902
  Transmission Date: 20150326
  Serious: Yes (Hospitalization)
  Sender: FDA-Public Use
  Company Number: PHHY2014IN106361

PATIENT
  Age: 12 Year
  Sex: Male

DRUGS (2)
  1. CEFTRIAXONE. [Suspect]
     Active Substance: CEFTRIAXONE
     Indication: ANTIBIOTIC PROPHYLAXIS
     Dosage: 500 MG, BID
     Route: 042
  2. NETILMICIN [Suspect]
     Active Substance: NETILMICIN
     Indication: ANTIBIOTIC PROPHYLAXIS
     Dosage: 150 MG, BID

REACTIONS (4)
  - Tetany [Recovered/Resolved]
  - Renal failure acute [Recovered/Resolved]
  - Hypocalcaemia [Recovered/Resolved]
  - Irritability [Recovered/Resolved]
